FAERS Safety Report 9358014 (Version 2)
Quarter: 2013Q3

REPORT INFORMATION
  Report Type: Spontaneous
  Country: US (occurrence: US)
  Receive Date: 20130620
  Receipt Date: 20130719
  Transmission Date: 20140515
  Serious: No
  Sender: FDA-Public Use
  Company Number: US-PFIZER INC-2013183165

PATIENT
  Age: 69 Year
  Sex: Female
  Weight: 109 kg

DRUGS (7)
  1. COLESTID [Suspect]
     Indication: BLOOD CHOLESTEROL INCREASED
     Dosage: 2 G, 3X/DAY
     Route: 048
     Dates: start: 20100902
  2. COLESTID [Suspect]
     Indication: POST CHOLECYSTECTOMY SYNDROME
     Dosage: 2 MG (2 TABLETS OF 1MG), 3X/DAY
     Route: 048
  3. COLESTID [Suspect]
     Indication: DIARRHOEA
     Dosage: 2 MG (2 TABLETS OF 1MG), 1X/DAY
     Route: 048
  4. GABAPENTIN [Concomitant]
     Dosage: UNK
  5. DETROL [Concomitant]
     Dosage: UNK
  6. FENOFIBRATE [Concomitant]
     Dosage: UNK
  7. METOPROLOL [Concomitant]
     Indication: MIGRAINE
     Dosage: UNK

REACTIONS (1)
  - Myalgia [Unknown]
